FAERS Safety Report 20868965 (Version 2)
Quarter: 2022Q2

REPORT INFORMATION
  Report Type: Report from Study
  Country: AR (occurrence: AR)
  Receive Date: 20220524
  Receipt Date: 20220615
  Transmission Date: 20220721
  Serious: Yes (Other)
  Sender: FDA-Public Use
  Company Number: AR-NOVARTISPH-NVSC2022AR116808

PATIENT
  Sex: Male

DRUGS (8)
  1. DIOVAN [Suspect]
     Active Substance: VALSARTAN
     Indication: Infarction
     Dosage: 1 DOSAGE FORM, QD
     Route: 065
     Dates: start: 2002, end: 2018
  2. DIOVAN [Suspect]
     Active Substance: VALSARTAN
     Indication: Hypertension
  3. NABILA [Concomitant]
     Indication: Cardiac disorder
     Dosage: 1 DOSAGE FORM, QD
     Route: 065
  4. VYTORIN [Concomitant]
     Active Substance: EZETIMIBE\SIMVASTATIN
     Indication: Blood cholesterol
     Dosage: 1 DOSAGE FORM, QD (OF 10/40 MG STARTED SINCE THE INFARCT))
     Route: 065
  5. AMIODARONE [Concomitant]
     Active Substance: AMIODARONE
     Indication: Arrhythmia
     Dosage: 1 DOSAGE FORM, QD (STARTED SINCE HE HAD AN ARRHYTHMIA)
     Route: 065
  6. CLOPIDOGREL BISULFATE [Concomitant]
     Active Substance: CLOPIDOGREL BISULFATE
     Indication: Cardiac disorder
     Dosage: 1 DOSAGE FORM, QD
     Route: 065
  7. EUTHYROX [Concomitant]
     Active Substance: LEVOTHYROXINE SODIUM
     Indication: Thyroid disorder
     Dosage: UNK
     Route: 065
  8. REDUPROST [Concomitant]
     Indication: Prostatic operation
     Dosage: 1 DOSAGE FORM, QD
     Route: 065

REACTIONS (5)
  - Cardiac failure [Unknown]
  - Malaise [Unknown]
  - Coronary artery disease [Unknown]
  - Renal neoplasm [Recovered/Resolved]
  - Cardiovascular disorder [Unknown]
